FAERS Safety Report 13924090 (Version 1)
Quarter: 2017Q3

REPORT INFORMATION
  Report Type: Spontaneous
  Country: US (occurrence: None)
  Receive Date: 20170830
  Receipt Date: 20170830
  Transmission Date: 20171127
  Serious: Yes (Hospitalization)
  Sender: FDA-Public Use
  Company Number: None

PATIENT
  Age: 23 Year
  Sex: Male
  Weight: 69.4 kg

DRUGS (1)
  1. IXEKIZUMAB 80 MG [Suspect]
     Active Substance: IXEKIZUMAB
     Indication: PYODERMA GANGRENOSUM
     Route: 058
     Dates: start: 20170810, end: 20170824

REACTIONS (1)
  - Pneumonia influenzal [None]

NARRATIVE: CASE EVENT DATE: 20170811
